FAERS Safety Report 4471024-3 (Version None)
Quarter: 2004Q4

REPORT INFORMATION
  Report Type: 
  Country: None (occurrence: None)
  Receive Date: 20041011
  Receipt Date: 20041008
  Transmission Date: 20050328
  Serious: Yes (Other)
  Sender: FDA-Public Use
  Company Number: US-GLAXOSMITHKLINE-A0529104A

PATIENT
  Sex: Female

DRUGS (3)
  1. ACYCLOVIR [Suspect]
     Dosage: 200MG PER DAY
     Route: 048
     Dates: start: 20000101
  2. ZOVIRAX [Suspect]
     Dosage: 200MG PER DAY
     Route: 048
     Dates: start: 19940101
  3. CHEMOTHERAPY [Concomitant]
     Route: 048

REACTIONS (2)
  - HERPES VIRUS INFECTION [None]
  - STRESS SYMPTOMS [None]
